FAERS Safety Report 13660694 (Version 1)
Quarter: 2017Q2

REPORT INFORMATION
  Report Type: Spontaneous
  Country: US (occurrence: US)
  Receive Date: 20170616
  Receipt Date: 20170616
  Transmission Date: 20170830
  Serious: No
  Sender: FDA-Public Use
  Company Number: US-LEXICON PHARMACEUTICALS, INC-17-1606-00343

PATIENT
  Sex: Male

DRUGS (2)
  1. TELOTRISTAT ETHYL [Suspect]
     Active Substance: TELOTRISTAT ETHYL
     Dates: start: 20170514, end: 20170521
  2. LOMOTIL [Concomitant]
     Active Substance: ATROPINE SULFATE\DIPHENOXYLATE HYDROCHLORIDE

REACTIONS (10)
  - Nausea [Recovering/Resolving]
  - Diarrhoea [Recovered/Resolved]
  - Pain in extremity [Unknown]
  - Flushing [Recovered/Resolved]
  - Restlessness [Unknown]
  - Night sweats [Unknown]
  - Frequent bowel movements [Unknown]
  - Initial insomnia [Unknown]
  - Sleep disorder [Unknown]
  - Abdominal pain upper [Recovered/Resolved]

NARRATIVE: CASE EVENT DATE: 201705
